FAERS Safety Report 9785202 (Version 1)
Quarter: 2013Q4

REPORT INFORMATION
  Report Type: Spontaneous
  Country: US (occurrence: None)
  Receive Date: 20131224
  Receipt Date: 20131224
  Transmission Date: 20140711
  Serious: Yes (Other)
  Sender: FDA-Public Use
  Company Number: 1300511

PATIENT
  Age: 52 Year
  Sex: Male
  Weight: 113.4 kg

DRUGS (2)
  1. NOSTRILLA [Suspect]
     Dosage: 1-2 SPRAYS NASALLY
     Dates: start: 19971214, end: 20131214
  2. VITAMINS [Concomitant]

REACTIONS (3)
  - Drug dependence [None]
  - Nasal discomfort [None]
  - Epistaxis [None]
